FAERS Safety Report 4988004-1 (Version None)
Quarter: 2006Q2

REPORT INFORMATION
  Report Type: 
  Country: None (occurrence: None)
  Receive Date: 20060424
  Receipt Date: 20060410
  Transmission Date: 20061013
  Serious: No
  Sender: FDA-Public Use
  Company Number: 2006P1000129

PATIENT
  Age: 29 Year
  Sex: Female

DRUGS (3)
  1. NICARDIPINE HYDROCHLORIDE [Suspect]
     Indication: TOCOLYSIS
     Dosage: SEE IMAGE
     Route: 042
  2. BETAMETHASONE [Suspect]
     Indication: MATERNAL THERAPY TO ENHANCE FOETAL LUNG MATURITY
     Dosage: 12 MG;QD;IM
     Route: 030
  3. BETAMETHASONE [Concomitant]

REACTIONS (7)
  - ACUTE PULMONARY OEDEMA [None]
  - ACUTE RESPIRATORY DISTRESS SYNDROME [None]
  - DRUG EXPOSURE DURING PREGNANCY [None]
  - ELECTROCARDIOGRAM T WAVE INVERSION [None]
  - OBSTETRIC PROCEDURE COMPLICATION [None]
  - SINUS TACHYCARDIA [None]
  - VENTRICULAR FIBRILLATION [None]
